FAERS Safety Report 8879951 (Version 1)
Quarter: 2012Q4

REPORT INFORMATION
  Report Type: 
  Country: US (occurrence: US)
  Receive Date: 20121031
  Receipt Date: 20121031
  Transmission Date: 20130627
  Serious: No
  Sender: FDA-Public Use
  Company Number: US-B.I. PHARMACEUTICALS,INC./RIDGEFIELD-2012-BP-26729BP

PATIENT
  Sex: Male

DRUGS (1)
  1. JENTADUETO [Suspect]
     Indication: TYPE 2 DIABETES MELLITUS
     Dates: start: 201208, end: 201210

REACTIONS (4)
  - Asthenia [Unknown]
  - Heart rate irregular [Unknown]
  - Muscle spasms [Unknown]
  - Fatigue [Unknown]
